FAERS Safety Report 23756571 (Version 6)
Quarter: 2024Q2

REPORT INFORMATION
  Report Type: Spontaneous
  Country: JP (occurrence: JP)
  Receive Date: 20240418
  Receipt Date: 20240627
  Transmission Date: 20240716
  Serious: Yes (Death, Other)
  Sender: FDA-Public Use
  Company Number: JP-GENMAB-2024-01243

PATIENT
  Age: 92 Year
  Sex: Female

DRUGS (30)
  1. EPKINLY [Suspect]
     Active Substance: EPCORITAMAB-BYSP
     Indication: Diffuse large B-cell lymphoma
     Dosage: 0.16 MILLIGRAM, SINGLE
     Route: 058
     Dates: start: 20240304, end: 20240304
  2. EPKINLY [Suspect]
     Active Substance: EPCORITAMAB-BYSP
     Dosage: 0.8 MILLIGRAM, SINGLE
     Route: 058
     Dates: start: 20240311, end: 20240311
  3. EPKINLY [Suspect]
     Active Substance: EPCORITAMAB-BYSP
     Dosage: 48 MILLIGRAM
     Route: 058
     Dates: start: 20240321, end: 20240328
  4. PREDNISOLONE [Concomitant]
     Active Substance: PREDNISOLONE
     Indication: Prophylaxis
     Dosage: 100 MILLIGRAM, DAY 1, DAY 2, DAY 3 AND DAY 4 OF ADMINISTRATION OF EPKINLY SUBCUTANEOUS INJECTION (EP
     Dates: start: 20240304, end: 20240331
  5. DIPHENHYDRAMINE [Concomitant]
     Active Substance: DIPHENHYDRAMINE
     Indication: Prophylaxis
     Dosage: 50 MILLIGRAM, DAY 1 OF ADMINISTRATION OF EPKINLY SUBCUTANEOUS INJECTION (EPCORITAMAB) (GENETICAL REC
     Dates: start: 20240304, end: 20240328
  6. CALONAL [Concomitant]
     Active Substance: ACETAMINOPHEN
     Indication: Prophylaxis
     Dosage: 1000 MILLIGRAM, DAY 1 OF ADMINISTRATION OF EPKINLY SUBCUTANEOUS INJECTION (EPCORITAMAB) (GENETICAL R
     Dates: start: 20240304, end: 20240328
  7. CALONAL [Concomitant]
     Active Substance: ACETAMINOPHEN
     Dosage: 2 DOSAGE FORM, QID, AFTER EVERY MEAL AND BEFORE GOING TO BED BEFORE HOSPITALIZED
     Dates: end: 20240402
  8. GALANTAMINE HYDROBROMIDE [Concomitant]
     Active Substance: GALANTAMINE HYDROBROMIDE
     Indication: Dementia
     Dosage: 1 DOSAGE FORM, BID, AFTER BREAKFAST AND DINNER BEFORE HOSPITALIZED
     Route: 048
     Dates: end: 20240321
  9. PITAVASTATIN CALCIUM [Concomitant]
     Active Substance: PITAVASTATIN CALCIUM
     Dosage: 1 DOSAGE FORM, QD, AFTER BREAKFAST BEFORE HOSPITALIZED
     Route: 048
     Dates: end: 20240402
  10. JANUVIA [Concomitant]
     Active Substance: SITAGLIPTIN PHOSPHATE
     Dosage: 1 DOSAGE FORM, QD, AFTER BREAKFAST BEFORE HOSIPITALIZED
     Route: 048
     Dates: end: 20240304
  11. VIBEGRON [Concomitant]
     Active Substance: VIBEGRON
     Dosage: 1 DOSAGE FORM, QD, AFTER DINNER BEFORE HOSIPITALIZED
     Route: 048
     Dates: end: 20240320
  12. FLUCONAZOLE [Concomitant]
     Active Substance: FLUCONAZOLE
     Dosage: 1 DOSAGE FORM, QD, AFTER BREAKFAST BEFORE HOSIPITALIZED
     Route: 048
     Dates: end: 20240302
  13. ACYCLOVIR [Concomitant]
     Active Substance: ACYCLOVIR
     Dosage: 200 MILLIGRAM, QD, AFTER BREAKFAST BEFORE HOSIPITALIZED
     Route: 048
     Dates: end: 20240402
  14. SULFAMETHOXAZOLE\TRIMETHOPRIM [Concomitant]
     Active Substance: SULFAMETHOXAZOLE\TRIMETHOPRIM
     Dosage: 0.5 DOSAGE FORM, 3 TIMES A WEEK(MON,THU AND FRI), AFTER BREAKFAST BEFORE HOSIPITALIZED
     Route: 048
     Dates: end: 20240402
  15. HERBALS [Concomitant]
     Active Substance: HERBALS
     Dosage: 1 DOSAGE FORM, TID
     Route: 048
  16. SITAGLIPTIN [Concomitant]
     Active Substance: SITAGLIPTIN
     Dosage: 2 DOSAGE FORM, QD, AFTER BREAKFAST
     Dates: start: 20240305, end: 20240402
  17. DECADRON [Concomitant]
     Active Substance: DEXAMETHASONE
     Dosage: 3 DOSAGE FORM, QD, AFTER BREAKFAST
     Dates: start: 20240318, end: 20240324
  18. DECADRON [Concomitant]
     Active Substance: DEXAMETHASONE
     Dosage: 1 DOSAGE FORM, QD, AFTER BREAKFAST
     Dates: start: 20240325, end: 20240325
  19. FEBUXOSTAT [Concomitant]
     Active Substance: FEBUXOSTAT
     Dosage: 4 DOSAGE FORM, QD, AFTER BREAKFAST
     Dates: start: 20240305, end: 20240329
  20. FEBUXOSTAT [Concomitant]
     Active Substance: FEBUXOSTAT
     Dosage: 1 DOSAGE FORM, QD, AFTER BREAKFAST
     Dates: start: 20240401, end: 20240402
  21. MIYA-BM [Concomitant]
     Active Substance: CLOSTRIDIUM BUTYRICUM SPORES STRAIN M-55
     Dosage: 1 DOSAGE FORM, TID, AFTER EVERY MEAL
     Dates: start: 20240401, end: 20240402
  22. ITRACONAZOLE [Concomitant]
     Active Substance: ITRACONAZOLE
     Dosage: 20 MILLILITER, QD, IN THE MIDDLE OF DINNER
     Dates: start: 20240315, end: 20240402
  23. ESOMEPRAZOLE [Concomitant]
     Active Substance: ESOMEPRAZOLE
     Dosage: 1 DOSAGE FORM, QD, AFTER BREAKFAST
     Dates: start: 20240312, end: 20240402
  24. PREGABALIN [Concomitant]
     Active Substance: PREGABALIN
     Dosage: 1 DOSAGE FORM, QD, BEFORE GOING TO BED
     Dates: start: 20240301, end: 20240402
  25. HYDROXYZINE PAMOATE [Concomitant]
     Active Substance: HYDROXYZINE PAMOATE
     Dosage: 25 MILLIGRAM, 0:30
     Dates: start: 20240403, end: 20240403
  26. ISOXSUPRINE HYDROCHLORIDE [Concomitant]
     Active Substance: ISOXSUPRINE HYDROCHLORIDE
     Dosage: 5 MILLIGRAM, PRN, AT THE TIME OF TACHYCARDIA
     Route: 042
     Dates: start: 20240317, end: 20240328
  27. INSULIN ASPART [Concomitant]
     Active Substance: INSULIN ASPART
     Dosage: UNK, ADJUSTE AS NEEDED, 7:30, 11:30, 17:30
     Dates: start: 20240318, end: 20240402
  28. INSULIN GLARGINE [Concomitant]
     Active Substance: INSULIN GLARGINE
     Dosage: UNK, AJUST AS NEEDED, 21:00
     Dates: start: 20240319, end: 20240402
  29. HUMULIN R [Concomitant]
     Active Substance: INSULIN HUMAN
     Dosage: UNK, AJUST AS NEEDED, 7:30, 11:30, 17:30
     Dates: start: 20240304, end: 20240402
  30. INSULIN NOS [Concomitant]
     Active Substance: INSULIN NOS
     Indication: Diabetes mellitus
     Dosage: UNK

REACTIONS (8)
  - Pneumonia [Fatal]
  - Myocardial infarction [Unknown]
  - Pulmonary infarction [Unknown]
  - Atrial fibrillation [Unknown]
  - Cytokine release syndrome [Recovered/Resolved]
  - Cytokine release syndrome [Recovered/Resolved]
  - Cytokine release syndrome [Recovering/Resolving]
  - General physical health deterioration [Fatal]

NARRATIVE: CASE EVENT DATE: 20240101
